FAERS Safety Report 8465112-4 (Version None)
Quarter: 2012Q2

REPORT INFORMATION
  Report Type: 
  Country: None (occurrence: None)
  Receive Date: 20120618
  Receipt Date: 20120602
  Transmission Date: 20120825
  Serious: Yes (Death, Hospitalization)
  Sender: FDA-Public Use
  Company Number: 2012AP001783

PATIENT
  Age: 60 Year
  Sex: Male

DRUGS (2)
  1. BUPROPION HYDROCHLORIDE [Suspect]
     Indication: PRODUCT USED FOR UNKNOWN INDICATION
  2. LIPID EMULSION [Suspect]
     Indication: CARDIOTOXICITY

REACTIONS (3)
  - DELIRIUM [None]
  - CARDIOTOXICITY [None]
  - SHOCK [None]
